FAERS Safety Report 5002038-2 (Version None)
Quarter: 2006Q2

REPORT INFORMATION
  Report Type: 
  Country: None (occurrence: None)
  Receive Date: 20060515
  Receipt Date: 20060103
  Transmission Date: 20061013
  Serious: Yes (Hospitalization)
  Sender: FDA-Public Use
  Company Number: US-MERCK-0601USA00291

PATIENT
  Age: 52 Year
  Sex: Male
  Weight: 85 kg

DRUGS (19)
  1. VIOXX [Suspect]
     Route: 048
     Dates: start: 20000101, end: 20010101
  2. LISINOPRIL-BC [Concomitant]
     Route: 065
  3. PLAVIX [Concomitant]
     Route: 065
  4. TOPROL-XL [Concomitant]
     Route: 065
  5. LIPITOR [Concomitant]
     Route: 065
  6. NIASPAN [Concomitant]
     Route: 065
  7. NITROGLYCERIN [Concomitant]
     Route: 065
  8. AMBIEN [Concomitant]
     Route: 065
  9. ZYRTEC [Concomitant]
     Route: 065
  10. LOTENSIN [Concomitant]
     Route: 065
  11. ACCUPRIL [Concomitant]
     Route: 065
  12. TEMAZEPAM [Concomitant]
     Route: 065
  13. NORVASC [Concomitant]
     Route: 065
  14. [THERAPY UNSPECIFIED] [Concomitant]
     Route: 065
  15. XANAX [Concomitant]
     Route: 065
  16. NEURONTIN [Concomitant]
     Route: 065
  17. DIAZEPAM [Concomitant]
     Route: 065
  18. ASPIRIN [Concomitant]
     Route: 065
  19. NITROSTAT [Concomitant]
     Route: 065

REACTIONS (22)
  - ACUTE MYOCARDIAL INFARCTION [None]
  - ARRHYTHMIA [None]
  - ARTERIOSCLEROSIS CORONARY ARTERY [None]
  - BRADYCARDIA [None]
  - CARDIAC DISORDER [None]
  - CORONARY ARTERY DISEASE [None]
  - CORONARY ARTERY RESTENOSIS [None]
  - DIZZINESS [None]
  - DYSPNOEA [None]
  - DYSPNOEA EXERTIONAL [None]
  - FATIGUE [None]
  - GINGIVAL BLEEDING [None]
  - HYPERLIPIDAEMIA [None]
  - HYPERTENSION [None]
  - INSOMNIA [None]
  - LUNG DISORDER [None]
  - OBESITY [None]
  - PNEUMONIA [None]
  - SEASONAL ALLERGY [None]
  - SLEEP APNOEA SYNDROME [None]
  - STENT OCCLUSION [None]
  - WEIGHT INCREASED [None]
